FAERS Safety Report 6848566-6 (Version None)
Quarter: 2010Q3

REPORT INFORMATION
  Report Type: 
  Country: None (occurrence: None)
  Receive Date: 20100716
  Receipt Date: 20100708
  Transmission Date: 20110219
  Serious: Yes (Hospitalization)
  Sender: FDA-Public Use
  Company Number: US-ASTRAZENECA-2010SE31834

PATIENT
  Age: 53 Year
  Sex: Female

DRUGS (3)
  1. SEROQUEL [Suspect]
     Route: 048
  2. PROZAC [Concomitant]
  3. WELLBUTRIN [Concomitant]

REACTIONS (2)
  - PNEUMONIA [None]
  - TARDIVE DYSKINESIA [None]
